FAERS Safety Report 8386414-6 (Version None)
Quarter: 2012Q2

REPORT INFORMATION
  Report Type: 
  Country: None (occurrence: None)
  Receive Date: 20120525
  Receipt Date: 20120523
  Transmission Date: 20120825
  Serious: Yes (Hospitalization, Other)
  Sender: FDA-Public Use
  Company Number: US-PFIZER INC-2012125207

PATIENT
  Sex: Male
  Weight: 124.72 kg

DRUGS (7)
  1. LISINOPRIL [Concomitant]
     Indication: HYPERTENSION
     Dosage: UNK
  2. GEODON [Suspect]
     Dosage: 60 MG IN MORNING AND ZIPRASIDONE 20 MG IN THE EVENING
     Route: 048
  3. PAXIL [Concomitant]
     Dosage: UNK
  4. COGENTIN [Concomitant]
     Dosage: UNK
  5. LAMICTAL [Concomitant]
     Dosage: UNK
  6. GEODON [Suspect]
     Indication: BIPOLAR DISORDER
     Dosage: 40 MG, 2X/DAY
     Route: 048
  7. SINGULAIR [Concomitant]
     Dosage: UNK

REACTIONS (5)
  - FATIGUE [None]
  - SPEECH DISORDER [None]
  - GAIT DISTURBANCE [None]
  - ACTIVITIES OF DAILY LIVING IMPAIRED [None]
  - HYPERSOMNIA [None]
